FAERS Safety Report 25143465 (Version 1)
Quarter: 2025Q2

REPORT INFORMATION
  Report Type: Spontaneous
  Country: US (occurrence: US)
  Receive Date: 20250401
  Receipt Date: 20250401
  Transmission Date: 20250717
  Serious: No
  Sender: TEVA
  Company Number: US-TEVA-VS-3311685

PATIENT

DRUGS (1)
  1. DEXTROAMPHETAMINE SACCHARATE, AMPHETAMINE ASPARTATE, DEXTROAMPHETAMINE [Suspect]
     Active Substance: AMPHETAMINE ASPARTATE\AMPHETAMINE SULFATE\DEXTROAMPHETAMINE SACCHARATE\DEXTROAMPHETAMINE SULFATE
     Indication: Product used for unknown indication
     Route: 065

REACTIONS (10)
  - Dizziness [Unknown]
  - Clumsiness [Unknown]
  - Thermal burn [Unknown]
  - Headache [Unknown]
  - Tremor [Unknown]
  - Accident [Unknown]
  - Dry mouth [Unknown]
  - Muscle spasms [Unknown]
  - Vision blurred [Unknown]
  - Irritability [Unknown]
